FAERS Safety Report 8877711 (Version 2)
Quarter: 2012Q4

REPORT INFORMATION
  Report Type: 
  Country: US (occurrence: US)
  Receive Date: 20121024
  Receipt Date: 20121123
  Transmission Date: 20130627
  Serious: Yes (Other)
  Sender: FDA-Public Use
  Company Number: US-PFIZER INC-2012264170

PATIENT

DRUGS (3)
  1. PHENYTOIN [Suspect]
     Indication: GRAND MAL SEIZURE
     Dosage: UNK
  2. DILANTIN [Suspect]
     Indication: GRAND MAL SEIZURE
     Dosage: 300 mg, UNK
  3. PHENOBARBITAL [Suspect]
     Indication: GRAND MAL SEIZURE
     Dosage: 120 mg, UNK

REACTIONS (3)
  - Homicidal ideation [Unknown]
  - Suicidal ideation [Unknown]
  - Abnormal behaviour [Unknown]
